FAERS Safety Report 24176217 (Version 1)
Quarter: 2024Q3

REPORT INFORMATION
  Report Type: Spontaneous
  Country: US (occurrence: US)
  Receive Date: 20240806
  Receipt Date: 20240806
  Transmission Date: 20241016
  Serious: No
  Sender: PADAGIS
  Company Number: US-PADAGIS-2024PAD01258

PATIENT

DRUGS (1)
  1. KETOCONAZOLE [Suspect]
     Active Substance: KETOCONAZOLE
     Indication: Pruritus
     Dosage: UNK
     Route: 065

REACTIONS (3)
  - Adverse drug reaction [Unknown]
  - Disease progression [Unknown]
  - Drug ineffective for unapproved indication [Unknown]
